FAERS Safety Report 9222842 (Version 1)
Quarter: 2013Q2

REPORT INFORMATION
  Report Type: Spontaneous
  Country: CN (occurrence: CN)
  Receive Date: 20130410
  Receipt Date: 20130410
  Transmission Date: 20140414
  Serious: Yes (Hospitalization)
  Sender: FDA-Public Use
  Company Number: CN-ROCHE-1207459

PATIENT
  Age: 71 Year
  Sex: Male

DRUGS (3)
  1. XELODA [Suspect]
     Indication: GASTRIC CANCER
     Route: 048
  2. DOCETAXEL [Suspect]
     Indication: GASTRIC CANCER
     Route: 065
  3. OXALIPLATIN [Suspect]
     Indication: GASTRIC CANCER
     Route: 065

REACTIONS (1)
  - Wernicke^s encephalopathy [Recovered/Resolved]
